FAERS Safety Report 4689463-4 (Version None)
Quarter: 2005Q2

REPORT INFORMATION
  Report Type: 
  Country: None (occurrence: None)
  Receive Date: 20050311
  Receipt Date: 20050311
  Transmission Date: 20051028
  Serious: No
  Sender: FDA-Public Use
  Company Number: None

PATIENT
  Sex: Female
  Weight: 114.0343 kg

DRUGS (3)
  1. LASIX [Suspect]
     Indication: ATRIAL FIBRILLATION
     Dosage: 20 MG PO 3 DAILY
     Route: 048
  2. LASIX [Suspect]
     Indication: CARDIAC FAILURE CONGESTIVE
     Dosage: 20 MG PO 3 DAILY
     Route: 048
  3. LASIX [Suspect]
     Indication: NEPHROTIC SYNDROME
     Dosage: 20 MG PO 3 DAILY
     Route: 048

REACTIONS (1)
  - DRUG EFFECT DECREASED [None]
